FAERS Safety Report 14646180 (Version 1)
Quarter: 2018Q1

REPORT INFORMATION
  Report Type: Report from Study
  Country: IT (occurrence: IT)
  Receive Date: 20180316
  Receipt Date: 20180316
  Transmission Date: 20180509
  Serious: Yes (Other)
  Sender: FDA-Public Use
  Company Number: IT-ROCHE-2084521

PATIENT
  Age: 67 Year
  Sex: Female
  Weight: 77 kg

DRUGS (16)
  1. RAMIPRIL. [Concomitant]
     Active Substance: RAMIPRIL
     Indication: HYPERTENSION
     Route: 065
  2. COUMADIN [Concomitant]
     Active Substance: WARFARIN SODIUM
     Route: 065
     Dates: start: 20131105
  3. OMEPRAZOLO [Concomitant]
     Active Substance: OMEPRAZOLE
     Indication: PROPHYLAXIS
     Route: 065
     Dates: start: 20131105
  4. DOXORUBICIN [Suspect]
     Active Substance: DOXORUBICIN
     Indication: NON-HODGKIN^S LYMPHOMA UNSPECIFIED HISTOLOGY INDOLENT
     Dosage: 50 MG/M^2 IV WILL BE ADMINISTERED ON DAY 1 OF EACH CYCLE DURING INDUCTION PERIOD (AS PER PROTOCOL)?M
     Route: 042
     Dates: start: 20131115
  5. VINCRISTINE [Suspect]
     Active Substance: VINCRISTINE
     Indication: NON-HODGKIN^S LYMPHOMA UNSPECIFIED HISTOLOGY INDOLENT
     Dosage: 1.4 MG/M^2 (MAXIMUM 2 MG) IV WILL BE ADMINISTERED ON DAY 1 OF EACH CYCLE DURING INDUCTION PERIOD (AS
     Route: 040
     Dates: start: 20131115
  6. FLECAINIDE [Concomitant]
     Active Substance: FLECAINIDE
     Indication: ATRIAL FIBRILLATION
     Route: 065
  7. TIMOLOLO [Concomitant]
     Indication: GLAUCOMA
     Dosage: 2 DROPS/DIE
     Route: 065
  8. BINOSTO [Concomitant]
     Active Substance: ALENDRONATE SODIUM
     Route: 065
     Dates: start: 20170521
  9. DIBASE [Concomitant]
     Active Substance: CHOLECALCIFEROL
     Route: 065
     Dates: start: 20170521
  10. BENADON [Concomitant]
     Active Substance: PYRIDOXINE HYDROCHLORIDE
     Indication: ANAEMIA
     Route: 065
     Dates: start: 20170607
  11. TAZOBACTAM/PIPERACILLIN [Concomitant]
     Active Substance: PIPERACILLIN SODIUM\TAZOBACTAM SODIUM
     Indication: PELVIC ABSCESS
     Route: 065
     Dates: start: 20180214, end: 20180223
  12. CYCLOPHOSPHAMIDE. [Suspect]
     Active Substance: CYCLOPHOSPHAMIDE
     Indication: NON-HODGKIN^S LYMPHOMA UNSPECIFIED HISTOLOGY INDOLENT
     Dosage: 750 MG/M^2 IV WILL BE ADMINISTERED ON DAY 1 OF EACH CYCLE DURING INDUCTION PERIOD (AS PER PROTOCOL)
     Route: 042
     Dates: start: 20131115
  13. PREDNISONE. [Suspect]
     Active Substance: PREDNISONE
     Indication: NON-HODGKIN^S LYMPHOMA UNSPECIFIED HISTOLOGY INDOLENT
     Dosage: 100 MG ON DAYS 1-5 OF EACH CYCLE DURING INDUCTION PERIOD (AS PER PROTOCOL)?MOST RECENT DOSE OF PREDN
     Route: 048
     Dates: start: 20131115
  14. FLECAINIDE [Concomitant]
     Active Substance: FLECAINIDE
     Dosage: 150 MG/DIE
     Route: 065
  15. FOLINA (ITALY) [Concomitant]
     Indication: ANAEMIA
     Route: 065
     Dates: start: 20170607
  16. OBINUTUZUMAB. [Suspect]
     Active Substance: OBINUTUZUMAB
     Indication: NON-HODGKIN^S LYMPHOMA UNSPECIFIED HISTOLOGY INDOLENT
     Dosage: 1000 MG INTRAVENOUS (IV) INFUSION WILL BE ADMINISTERED ON DAY 1, 8, AND 15 OF CYCLE 1 AND THEN ON DA
     Route: 042
     Dates: start: 20131115

REACTIONS (1)
  - Myelodysplastic syndrome [Not Recovered/Not Resolved]

NARRATIVE: CASE EVENT DATE: 20170922
